FAERS Safety Report 22595316 (Version 1)
Quarter: 2023Q2

REPORT INFORMATION
  Report Type: Spontaneous
  Country: ES (occurrence: ES)
  Receive Date: 20230613
  Receipt Date: 20230613
  Transmission Date: 20230722
  Serious: Yes (Other)
  Sender: FDA-Public Use
  Company Number: None

PATIENT
  Age: 35 Year
  Sex: Male

DRUGS (2)
  1. METHOTREXATE SODIUM [Suspect]
     Active Substance: METHOTREXATE SODIUM
     Indication: Tooth infection
     Dosage: 2.5 MG, 2X/DAY (EACH 12H)
     Route: 048
     Dates: start: 20230505, end: 20230511
  2. METRONIDAZOLE [Suspect]
     Active Substance: METRONIDAZOLE
     Indication: Tooth infection

REACTIONS (6)
  - Product dispensing error [Recovered/Resolved]
  - Thrombocytopenia [Unknown]
  - Malaise [Unknown]
  - Dizziness [Unknown]
  - Oropharyngeal pain [Unknown]
  - Rash [Unknown]

NARRATIVE: CASE EVENT DATE: 20230505
